FAERS Safety Report 9751519 (Version 2)
Quarter: 2013Q4

REPORT INFORMATION
  Report Type: Spontaneous
  Country: US (occurrence: US)
  Receive Date: 20131212
  Receipt Date: 20131212
  Transmission Date: 20140711
  Serious: No
  Sender: FDA-Public Use
  Company Number: US-PURDUE-USA-2013-0100774

PATIENT
  Sex: Male

DRUGS (4)
  1. HYDROMORPHONE TABLET (RHODES) [Suspect]
     Indication: PAIN
     Dosage: 2 MG, Q3-4H PRN
     Dates: start: 20130327
  2. HYDROCORTISONE                     /00028604/ [Concomitant]
     Indication: APPLICATION SITE IRRITATION
     Dosage: 2 %, PRN
     Route: 061
  3. ZOFRAN                             /00955301/ [Concomitant]
     Indication: NAUSEA
     Dosage: UNK, PRN
     Route: 048
  4. CALAMINE                           /01864001/ [Concomitant]
     Indication: PRURITUS
     Dosage: UNK, PRN
     Route: 061

REACTIONS (1)
  - Drug ineffective [Unknown]
